FAERS Safety Report 5492107-5 (Version None)
Quarter: 2007Q4

REPORT INFORMATION
  Report Type: 
  Country: None (occurrence: None)
  Receive Date: 20071022
  Receipt Date: 20071018
  Transmission Date: 20080405
  Serious: Yes (Life-Threatening, Hospitalization, Other)
  Sender: FDA-Public Use
  Company Number: US-BRISTOL-MYERS SQUIBB COMPANY-13942263

PATIENT
  Age: 39 Year
  Sex: Male

DRUGS (7)
  1. CYCLOPHOSPHAMIDE [Suspect]
     Route: 042
     Dates: start: 20070308
  2. METHOTREXATE [Suspect]
     Route: 037
     Dates: start: 20070308
  3. NEUPOGEN [Suspect]
     Dosage: 1 DOSAGE FORM = 30 MU
     Route: 058
     Dates: start: 20070323
  4. RITUXIMAB [Suspect]
     Route: 042
     Dates: start: 20070308, end: 20070424
  5. PREDNISOLONE [Concomitant]
     Route: 048
     Dates: start: 20070308
  6. RANITIDINE HCL [Concomitant]
     Route: 048
     Dates: start: 20070308
  7. VINCRISTINE SULFATE [Concomitant]
     Route: 040
     Dates: start: 20070308

REACTIONS (2)
  - PNEUMONITIS [None]
  - PULMONARY FIBROSIS [None]
